FAERS Safety Report 9626834 (Version 1)
Quarter: 2013Q4

REPORT INFORMATION
  Report Type: Spontaneous
  Country: FR (occurrence: FR)
  Receive Date: 20131016
  Receipt Date: 20131016
  Transmission Date: 20140711
  Serious: Yes (Hospitalization)
  Sender: FDA-Public Use
  Company Number: FR-PFIZER INC-2013291591

PATIENT
  Age: 61 Year
  Sex: Male
  Weight: 89 kg

DRUGS (8)
  1. TAHOR [Suspect]
     Dosage: 20 MG, DAILY
     Route: 048
     Dates: end: 201309
  2. FORADIL [Concomitant]
  3. MIFLONIL [Concomitant]
  4. NISISCO [Concomitant]
     Dosage: 1 DF, DAILY
  5. JANUMET [Concomitant]
     Dosage: 2 DF, DAILY
  6. KARDEGIC [Concomitant]
     Dosage: 75 MG, DAILY
  7. THIOCOLCHICOSIDE [Concomitant]
     Dosage: UNK
  8. PARACETAMOL [Concomitant]
     Dosage: AS NEEDED

REACTIONS (1)
  - Diplopia [Unknown]
